FAERS Safety Report 6137503-8 (Version None)
Quarter: 2009Q1

REPORT INFORMATION
  Report Type: 
  Country: None (occurrence: None)
  Receive Date: 20090326
  Receipt Date: 20090317
  Transmission Date: 20090719
  Serious: Yes (Other)
  Sender: FDA-Public Use
  Company Number: GXKR2009GB03416

PATIENT
  Age: 16 Year
  Sex: Male
  Weight: 64 kg

DRUGS (2)
  1. OMEPRAZOLE [Suspect]
     Dosage: 10 MG, BID, ORAL
     Route: 048
     Dates: start: 20090109
  2. LYMECYCLINE (LYMECYCLINE) [Concomitant]

REACTIONS (1)
  - NEPHROTIC SYNDROME [None]
